FAERS Safety Report 4289349-3 (Version None)
Quarter: 2004Q1

REPORT INFORMATION
  Report Type: 
  Country: None (occurrence: None)
  Receive Date: 20040203
  Receipt Date: 20030715
  Transmission Date: 20041129
  Serious: Yes (Other)
  Sender: FDA-Public Use
  Company Number: 200320635BWH

PATIENT
  Age: 66 Year
  Sex: Female
  Weight: 67.1324 kg

DRUGS (4)
  1. AVELOX [Suspect]
     Indication: DYSURIA
     Dosage: 400 MG, ONCE, ORAL
     Route: 048
     Dates: start: 20030708
  2. AVELOX [Suspect]
     Indication: POLLAKIURIA
     Dosage: 400 MG, ONCE, ORAL
     Route: 048
     Dates: start: 20030708
  3. VITAMIN B COMPLEX CAP [Concomitant]
  4. ESTROGEN [Concomitant]

REACTIONS (7)
  - ANAPHYLACTIC SHOCK [None]
  - ASTHENIA [None]
  - FEELING HOT [None]
  - HYPOTENSION [None]
  - LOSS OF CONSCIOUSNESS [None]
  - RESPIRATORY DISTRESS [None]
  - VENTRICULAR EXTRASYSTOLES [None]
